FAERS Safety Report 20380511 (Version 3)
Quarter: 2022Q1

REPORT INFORMATION
  Report Type: Report from Study
  Country: LB (occurrence: LB)
  Receive Date: 20220127
  Receipt Date: 20220310
  Transmission Date: 20220423
  Serious: Yes (Death, Hospitalization)
  Sender: FDA-Public Use
  Company Number: LB-ABBVIE-22K-093-4248810-00

PATIENT
  Age: 47 Year
  Sex: Male
  Weight: 63 kg

DRUGS (6)
  1. VENCLEXTA [Suspect]
     Active Substance: VENETOCLAX
     Indication: Chronic lymphocytic leukaemia
     Route: 048
     Dates: start: 20200824, end: 20200830
  2. VENCLEXTA [Suspect]
     Active Substance: VENETOCLAX
     Route: 048
     Dates: start: 20200831, end: 20200906
  3. VENCLEXTA [Suspect]
     Active Substance: VENETOCLAX
     Route: 048
     Dates: start: 20200907, end: 20200913
  4. VENCLEXTA [Suspect]
     Active Substance: VENETOCLAX
     Route: 048
     Dates: start: 20200914, end: 20200920
  5. VENCLEXTA [Suspect]
     Active Substance: VENETOCLAX
     Route: 048
     Dates: start: 20200921, end: 20211214
  6. GAZYVA [Concomitant]
     Active Substance: OBINUTUZUMAB
     Indication: Product used for unknown indication
     Dates: start: 202008

REACTIONS (5)
  - COVID-19 [Fatal]
  - Oxygen saturation decreased [Fatal]
  - Pneumonia [Fatal]
  - General physical health deterioration [Fatal]
  - Pneumonia [Fatal]

NARRATIVE: CASE EVENT DATE: 20220101
